FAERS Safety Report 5574699-0 (Version None)
Quarter: 2007Q4

REPORT INFORMATION
  Report Type: 
  Country: None (occurrence: None)
  Receive Date: 20071130
  Receipt Date: 20071003
  Transmission Date: 20080405
  Serious: Yes (Other)
  Sender: FDA-Public Use
  Company Number: PHEH2007US12451

PATIENT
  Age: 82 Year
  Sex: Female

DRUGS (12)
  1. TEKTURNA [Suspect]
     Indication: HYPERTENSION
     Dosage: 150 MG, QD, ORAL
     Route: 048
     Dates: start: 20070830, end: 20070906
  2. ACETYLSALICYLIC ACID SRT [Concomitant]
  3. COREG [Concomitant]
  4. ISOSORBIDE DINITRATE [Concomitant]
  5. KLOR-CON [Concomitant]
  6. LASIX [Concomitant]
  7. NITROGLYCERIN [Concomitant]
  8. NORVASC [Concomitant]
  9. PLAVIX [Concomitant]
  10. ULTRAM [Concomitant]
  11. VALIUM [Concomitant]
  12. XALATAN [Concomitant]

REACTIONS (5)
  - DRUG INEFFECTIVE [None]
  - HEADACHE [None]
  - HYPERTENSION [None]
  - HYPERVENTILATION [None]
  - RASH [None]
